FAERS Safety Report 10872143 (Version 1)
Quarter: 2015Q1

REPORT INFORMATION
  Report Type: Spontaneous
  Country: US (occurrence: None)
  Receive Date: 20150223
  Receipt Date: 20150223
  Transmission Date: 20150721
  Serious: Yes (Disabling)
  Sender: FDA-Public Use
  Company Number: None

PATIENT
  Age: 3 Month
  Sex: Female
  Weight: 13.61 kg

DRUGS (2)
  1. INFANTS ACETAMINOPHEN [Suspect]
     Active Substance: ACETAMINOPHEN
     Indication: PYREXIA
     Dosage: DATES OF USE: FROM MARCH OF 2012-14
  2. INFANTS ACETAMINOPHEN [Suspect]
     Active Substance: ACETAMINOPHEN
     Indication: TEETHING
     Dosage: DATES OF USE: FROM MARCH OF 2012-14

REACTIONS (1)
  - Autism spectrum disorder [None]

NARRATIVE: CASE EVENT DATE: 20150222
